FAERS Safety Report 4704369-X (Version None)
Quarter: 2005Q2

REPORT INFORMATION
  Report Type: 
  Country: None (occurrence: None)
  Receive Date: 20050628
  Receipt Date: 20050621
  Transmission Date: 20051028
  Serious: Yes (Death)
  Sender: FDA-Public Use
  Company Number: 200510476BVD

PATIENT
  Age: 68 Year
  Sex: Male
  Weight: 79 kg

DRUGS (13)
  1. AVELOX [Suspect]
     Indication: SURGERY
     Dosage: 400 MG, QD, ORAL
     Route: 048
     Dates: start: 20050222
  2. THEOPHYLLINE [Concomitant]
  3. ISOPTIN [Concomitant]
  4. VOLTAREN [Concomitant]
  5. PANTOPRAZOLE SODIUM [Concomitant]
  6. OXYGESIC [Concomitant]
  7. NOVODIGAL [Concomitant]
  8. MAGNESIUM VERLA [Concomitant]
  9. ACC LONG [Concomitant]
  10. MUCOSOLVAN [Concomitant]
  11. NOVAMIN [Concomitant]
  12. CATAPRES [Concomitant]
  13. CLEXANE [Concomitant]

REACTIONS (7)
  - DIALYSIS [None]
  - EXANTHEM [None]
  - GASTROINTESTINAL DISORDER [None]
  - HAEMOLYSIS [None]
  - MULTI-ORGAN FAILURE [None]
  - RENAL FAILURE [None]
  - RESPIRATORY FAILURE [None]
